FAERS Safety Report 5317269-1 (Version None)
Quarter: 2007Q2

REPORT INFORMATION
  Report Type: 
  Country: None (occurrence: None)
  Receive Date: 20070504
  Receipt Date: 20070423
  Transmission Date: 20071010
  Serious: Yes (Other)
  Sender: FDA-Public Use
  Company Number: GB-PFIZER INC-2007033214

PATIENT
  Sex: Male

DRUGS (1)
  1. VIAGRA [Suspect]

REACTIONS (18)
  - ADVERSE DRUG REACTION [None]
  - BACK PAIN [None]
  - CONJUNCTIVITIS [None]
  - DERMATITIS CONTACT [None]
  - DIZZINESS [None]
  - EPIDIDYMAL CYST [None]
  - ERECTILE DYSFUNCTION [None]
  - ESSENTIAL HYPERTENSION [None]
  - EXTRAOCULAR MUSCLE DISORDER [None]
  - FACIAL BONES FRACTURE [None]
  - FATIGUE [None]
  - HAEMATURIA [None]
  - OTITIS EXTERNA [None]
  - PROTEINURIA [None]
  - RADIUS FRACTURE [None]
  - UMBILICAL HERNIA [None]
  - URINARY TRACT INFECTION [None]
  - VISION BLURRED [None]
